FAERS Safety Report 14271884 (Version 1)
Quarter: 2017Q4

REPORT INFORMATION
  Report Type: Spontaneous
  Country: US (occurrence: None)
  Receive Date: 20171211
  Receipt Date: 20171211
  Transmission Date: 20180321
  Serious: Yes (Hospitalization)
  Sender: FDA-Public Use
  Company Number: None

PATIENT
  Age: 69 Year
  Sex: Male

DRUGS (24)
  1. ONDANSETRON [Concomitant]
     Active Substance: ONDANSETRON
  2. ACYCLOVIR. [Concomitant]
     Active Substance: ACYCLOVIR
  3. DOCUSATE SOD [Concomitant]
  4. CRESTOR [Concomitant]
     Active Substance: ROSUVASTATIN CALCIUM
  5. ASPIRIN. [Concomitant]
     Active Substance: ASPIRIN
  6. MAG OX [Concomitant]
     Active Substance: MAGNESIUM OXIDE
  7. METFORMIN [Concomitant]
     Active Substance: METFORMIN HYDROCHLORIDE
  8. VITAMIN B12 [Concomitant]
     Active Substance: CYANOCOBALAMIN
  9. FAMOTIDINE. [Concomitant]
     Active Substance: FAMOTIDINE
  10. ARIMIDEX [Concomitant]
     Active Substance: ANASTROZOLE
  11. CYCLOBENZAPRINE. [Concomitant]
     Active Substance: CYCLOBENZAPRINE
  12. VITAMIN D3 [Concomitant]
     Active Substance: CHOLECALCIFEROL
  13. NIFEDIPINE. [Concomitant]
     Active Substance: NIFEDIPINE
  14. LOSARTAN. [Concomitant]
     Active Substance: LOSARTAN
  15. LACTULOSE. [Concomitant]
     Active Substance: LACTULOSE
  16. LUPRON [Concomitant]
     Active Substance: LEUPROLIDE ACETATE
  17. PENTOXIFYLLI [Concomitant]
  18. XGEVA [Concomitant]
     Active Substance: DENOSUMAB
  19. MORPHINE [Concomitant]
     Active Substance: MORPHINE
  20. PEG 3350 [Concomitant]
     Active Substance: POLYETHYLENE GLYCOL 3350
  21. ZYTIGA [Suspect]
     Active Substance: ABIRATERONE ACETATE
     Indication: METASTASES TO BONE
     Route: 048
     Dates: start: 20170717
  22. CAPSAICIN. [Concomitant]
     Active Substance: CAPSAICIN
  23. FLUTICASONE. [Concomitant]
     Active Substance: FLUTICASONE
  24. METOPROLOL. [Concomitant]
     Active Substance: METOPROLOL

REACTIONS (2)
  - Swelling [None]
  - Therapy cessation [None]

NARRATIVE: CASE EVENT DATE: 2017
